FAERS Safety Report 8125123-5 (Version None)
Quarter: 2012Q1

REPORT INFORMATION
  Report Type: 
  Country: None (occurrence: None)
  Receive Date: 20120209
  Receipt Date: 20111018
  Transmission Date: 20120608
  Serious: Yes (Hospitalization, Other)
  Sender: FDA-Public Use
  Company Number: US-ROCHE-1005944

PATIENT

DRUGS (8)
  1. PREVACID [Concomitant]
     Route: 048
     Dates: start: 20110407
  2. ATROVENT [Concomitant]
     Indication: TRACHEOMALACIA
     Dates: start: 20110601
  3. PREVACID [Concomitant]
     Dosage: DOSE 15 MI, TDD 30 MI
     Route: 048
     Dates: start: 20110323, end: 20110329
  4. OMALIZUMAB [Suspect]
     Indication: ASTHMA
     Dosage: MOST RECENT DOSE 14/MAR/2011
     Route: 015
     Dates: start: 20060324
  5. XOPENEX [Concomitant]
     Indication: PROPHYLAXIS
     Dates: start: 20110601
  6. ZANTAC [Concomitant]
     Route: 048
     Dates: start: 20110329, end: 20110407
  7. SINGULAIR [Concomitant]
     Indication: BRONCHIAL HYPERREACTIVITY
     Route: 048
     Dates: start: 20110817
  8. FLOVENT [Concomitant]
     Indication: BRONCHIAL HYPERREACTIVITY
     Dates: start: 20110817

REACTIONS (5)
  - MATERNAL EXPOSURE TIMING UNSPECIFIED [None]
  - CONSTIPATION [None]
  - VOMITING [None]
  - BRONCHIOLITIS [None]
  - DYSPHAGIA [None]
